FAERS Safety Report 7477701-4 (Version None)
Quarter: 2011Q2

REPORT INFORMATION
  Report Type: 
  Country: None (occurrence: None)
  Receive Date: 20110513
  Receipt Date: 20110411
  Transmission Date: 20111010
  Serious: Yes (Life-Threatening, Hospitalization, Other)
  Sender: FDA-Public Use
  Company Number: US-BAYER-201040905NA

PATIENT
  Sex: Female
  Weight: 88.435 kg

DRUGS (2)
  1. YASMIN [Suspect]
     Indication: ORAL CONTRACEPTION
  2. YAZ [Suspect]
     Indication: ORAL CONTRACEPTION

REACTIONS (2)
  - ORGAN FAILURE [None]
  - GALLBLADDER DISORDER [None]
